FAERS Safety Report 21230328 (Version 1)
Quarter: 2022Q3

REPORT INFORMATION
  Report Type: Spontaneous
  Country: BR (occurrence: BR)
  Receive Date: 20220818
  Receipt Date: 20220818
  Transmission Date: 20221026
  Serious: Yes (Hospitalization, Other)
  Sender: FDA-Public Use
  Company Number: BR-BIOGEN-2022BI01146664

PATIENT
  Age: 9 Year
  Sex: Female

DRUGS (1)
  1. SPINRAZA [Suspect]
     Active Substance: NUSINERSEN
     Indication: Spinal muscular atrophy
     Route: 050
     Dates: start: 20210616, end: 20220701

REACTIONS (6)
  - Febrile neutropenia [Unknown]
  - Anaemia [Unknown]
  - Fungal sepsis [Unknown]
  - Liver abscess [Unknown]
  - Chronic respiratory failure [Unknown]
  - Dysphagia [Unknown]
